FAERS Safety Report 7146146-9 (Version None)
Quarter: 2010Q4

REPORT INFORMATION
  Report Type: 
  Country: None (occurrence: None)
  Receive Date: 20101208
  Receipt Date: 20101129
  Transmission Date: 20110411
  Serious: Yes (Other)
  Sender: FDA-Public Use
  Company Number: JP-AMGEN-JPNCT2010004878

PATIENT

DRUGS (7)
  1. PANITUMUMAB [Suspect]
     Indication: COLORECTAL CANCER
     Dosage: 2
     Route: 041
     Dates: start: 20101026, end: 20101026
  2. ANTIHISTAMINES [Concomitant]
     Indication: PROPHYLAXIS
     Route: 065
  3. ALLEGRA [Concomitant]
     Route: 048
  4. MINOCIN [Concomitant]
     Route: 048
  5. HIRUDOID SOFT [Concomitant]
     Route: 062
  6. PARIET [Concomitant]
     Route: 048
  7. MINOMYCIN [Concomitant]
     Route: 048

REACTIONS (1)
  - OESOPHAGEAL VARICES HAEMORRHAGE [None]
